FAERS Safety Report 6387182-X (Version None)
Quarter: 2009Q4

REPORT INFORMATION
  Report Type: 
  Country: None (occurrence: None)
  Receive Date: 20091002
  Receipt Date: 20090923
  Transmission Date: 20100525
  Serious: Yes (Other)
  Sender: FDA-Public Use
  Company Number: BR-ABBOTT-09P-020-0590084-00

PATIENT
  Sex: Female
  Weight: 65 kg

DRUGS (12)
  1. HUMIRA [Suspect]
     Indication: RHEUMATOID ARTHRITIS
     Route: 058
     Dates: start: 20090401
  2. TAPAZOL [Concomitant]
     Indication: THYROID DISORDER
     Route: 048
     Dates: start: 20040101
  3. BENEFIX [Concomitant]
     Indication: EMPHYSEMA
     Dates: start: 20070101
  4. BENEFIX [Concomitant]
     Indication: BRONCHITIS
  5. BETASERC [Concomitant]
     Indication: LABYRINTHITIS
     Route: 048
     Dates: start: 20040101
  6. CARVEDILOL [Concomitant]
     Indication: CARDIAC DISORDER
     Route: 048
     Dates: start: 20060101
  7. NIMESULIDE [Concomitant]
     Indication: PAIN
     Route: 048
     Dates: start: 20090501
  8. SPIRONOLACTONE [Concomitant]
     Indication: SWELLING
     Route: 048
     Dates: start: 20070101
  9. PREDNISONE TAB [Concomitant]
     Indication: DRUG USE FOR UNKNOWN INDICATION
     Route: 048
     Dates: start: 20060101
  10. AMITRIPTYLINE [Concomitant]
     Indication: DEPRESSION
     Route: 048
  11. ARAVA [Concomitant]
     Indication: RHEUMATOID ARTHRITIS
     Route: 048
     Dates: start: 20090301, end: 20090701
  12. INSULINE [Concomitant]
     Indication: DIABETES MELLITUS
     Dates: start: 20090501

REACTIONS (5)
  - ARTHRALGIA [None]
  - BLOOD PRESSURE INCREASED [None]
  - BONE EROSION [None]
  - CATARACT [None]
  - FRACTURE [None]
